APPROVED DRUG PRODUCT: LAMIVUDINE AND ZIDOVUDINE
Active Ingredient: LAMIVUDINE; ZIDOVUDINE
Strength: 150MG;300MG
Dosage Form/Route: TABLET;ORAL
Application: A204005 | Product #001
Applicant: NATCO PHARMA LTD
Approved: Aug 28, 2014 | RLD: No | RS: No | Type: DISCN